FAERS Safety Report 9254610 (Version 1)
Quarter: 2013Q1

REPORT INFORMATION
  Report Type: Spontaneous
  Country: US (occurrence: None)
  Receive Date: 20121203
  Receipt Date: 20121203
  Transmission Date: 20140127
  Serious: Yes (Hospitalization, Disabling, Other)
  Sender: FDA-Public Use
  Company Number: 2011SP051272

PATIENT
  Age: 27 Year
  Sex: Female
  Weight: 90.7 kg

DRUGS (3)
  1. NUVARING [Suspect]
     Dates: end: 20080722
  2. NUVARING [Suspect]
     Dates: end: 20080722
  3. YASMIN [Suspect]
     Dates: start: 200807, end: 200811

REACTIONS (14)
  - Pulmonary embolism [None]
  - Deep vein thrombosis [None]
  - Depression [None]
  - Ovarian cyst [None]
  - Stress [None]
  - Off label use [None]
  - Hypercoagulation [None]
  - Decreased appetite [None]
  - Anxiety [None]
  - Hirsutism [None]
  - Premenstrual syndrome [None]
  - Alopecia [None]
  - Dysmenorrhoea [None]
  - Fatigue [None]
